FAERS Safety Report 20022863 (Version 1)
Quarter: 2021Q4

REPORT INFORMATION
  Report Type: Spontaneous
  Country: FR (occurrence: FR)
  Receive Date: 20211102
  Receipt Date: 20211102
  Transmission Date: 20220303
  Serious: Yes (Hospitalization, Congenital Anomaly)
  Sender: FDA-Public Use
  Company Number: None

PATIENT
  Sex: Male
  Weight: 3.1 kg

DRUGS (3)
  1. QUETIAPINE [Suspect]
     Active Substance: QUETIAPINE
     Indication: Bipolar disorder
     Dosage: (MATERNAL DOSE: 30 MG, QD)
     Route: 064
     Dates: start: 20210120, end: 20211008
  2. LAMICTAL [Suspect]
     Active Substance: LAMOTRIGINE
     Indication: Bipolar disorder
     Dosage: (MATERNAL DOSE: 200 MG, QD)
     Route: 064
     Dates: start: 20210120, end: 20211008
  3. VALIUM [Suspect]
     Active Substance: DIAZEPAM
     Indication: Anxiety disorder
     Dosage: (MATERNAL DOSE: 15 MG, QD)
     Route: 064
     Dates: start: 20210120, end: 20211008

REACTIONS (2)
  - Congenital anomaly [Not Recovered/Not Resolved]
  - Withdrawal syndrome [Not Recovered/Not Resolved]

NARRATIVE: CASE EVENT DATE: 20211008
